FAERS Safety Report 4776332-4 (Version None)
Quarter: 2005Q3

REPORT INFORMATION
  Report Type: 
  Country: None (occurrence: None)
  Receive Date: 20050921
  Receipt Date: 20050906
  Transmission Date: 20060218
  Serious: Yes (Hospitalization, Disabling)
  Sender: FDA-Public Use
  Company Number: 2005P1000384

PATIENT
  Age: 76 Year
  Sex: Female
  Weight: 67 kg

DRUGS (8)
  1. RETEVASE [Suspect]
     Indication: ACUTE MYOCARDIAL INFARCTION
     Dosage: IV
     Route: 042
     Dates: start: 20050110
  2. ABCIXIMAB              (ABCIXIMAB) [Suspect]
     Indication: ACUTE MYOCARDIAL INFARCTION
     Dosage: IV
     Route: 042
     Dates: start: 20050110
  3. ASPIRIN [Concomitant]
  4. LOSARTAN POTASSIUM [Concomitant]
  5. BETALOC [Concomitant]
  6. PLAVIX [Concomitant]
  7. FURON [Concomitant]
  8. INSULIN [Concomitant]

REACTIONS (10)
  - ATRIAL FIBRILLATION [None]
  - BRADYCARDIA [None]
  - BRAIN SCAN ABNORMAL [None]
  - CARDIAC FAILURE [None]
  - CEREBROVASCULAR ACCIDENT [None]
  - CHEST PAIN [None]
  - DRESSLER'S SYNDROME [None]
  - EMBOLISM [None]
  - PROCEDURAL COMPLICATION [None]
  - SHOULDER PAIN [None]
